FAERS Safety Report 8453934-5 (Version None)
Quarter: 2012Q2

REPORT INFORMATION
  Report Type: 
  Country: None (occurrence: None)
  Receive Date: 20120620
  Receipt Date: 20120618
  Transmission Date: 20120825
  Serious: Yes (Other)
  Sender: FDA-Public Use
  Company Number: US-PFIZER INC-2012147195

PATIENT
  Sex: Female
  Weight: 81.63 kg

DRUGS (5)
  1. CELEBREX [Suspect]
     Indication: BONE PAIN
  2. CELEBREX [Suspect]
     Indication: ARTHRALGIA
     Dosage: 200 MG, DAILY
     Route: 048
  3. CELEBREX [Suspect]
     Indication: ABASIA
  4. HYDROCHLOROTHIAZIDE [Concomitant]
     Indication: HYPERTENSION
     Dosage: 25 MG, DAILY
  5. METOPROLOL SUCCINATE [Concomitant]
     Indication: ATRIOVENTRICULAR BLOCK
     Dosage: 50 MG, DAILY
     Route: 048

REACTIONS (3)
  - GASTRIC DISORDER [None]
  - HIP FRACTURE [None]
  - FALL [None]
